FAERS Safety Report 14142920 (Version 1)
Quarter: 2017Q4

REPORT INFORMATION
  Report Type: Spontaneous
  Country: US (occurrence: US)
  Receive Date: 20171030
  Receipt Date: 20171030
  Transmission Date: 20180321
  Serious: No
  Sender: FDA-Public Use
  Company Number: US-BAYER-2017-199452

PATIENT
  Sex: Female
  Weight: 95 kg

DRUGS (2)
  1. MENSTRIDOL [Suspect]
     Active Substance: NAPROXEN SODIUM
     Dosage: 1 DF, PRN
     Route: 048
  2. MIDOL COMPLETE [Suspect]
     Active Substance: ACETAMINOPHEN\CAFFEINE\PYRILAMINE MALEATE
     Dosage: 1 DF, BID
     Route: 048
     Dates: start: 2016

REACTIONS (4)
  - Therapeutic response unexpected [Unknown]
  - Incorrect dose administered [Unknown]
  - Headache [Unknown]
  - Drug ineffective [Unknown]
